FAERS Safety Report 9559624 (Version 2)
Quarter: 2013Q4

REPORT INFORMATION
  Report Type: Spontaneous
  Country: US (occurrence: US)
  Receive Date: 20130927
  Receipt Date: 20131021
  Transmission Date: 20140711
  Serious: No
  Sender: FDA-Public Use
  Company Number: US-009507513-1309USA013189

PATIENT
  Age: 49 Year
  Sex: Female

DRUGS (4)
  1. SAPHRIS [Suspect]
     Indication: BIPOLAR DISORDER
     Dosage: 5 MG, HS
     Route: 060
  2. SAPHRIS [Suspect]
     Dosage: 10 MG, QD; RAPID DISSOLVE 10
     Route: 060
     Dates: end: 20130925
  3. SAPHRIS [Suspect]
     Dosage: 5 MG, UNK
     Route: 060
     Dates: start: 2013
  4. SEROQUEL [Concomitant]
     Dosage: UNK

REACTIONS (5)
  - Nervousness [Recovered/Resolved]
  - Akathisia [Recovered/Resolved]
  - Restlessness [Recovered/Resolved]
  - Underdose [Unknown]
  - Inappropriate schedule of drug administration [Unknown]
